FAERS Safety Report 22283088 (Version 1)
Quarter: 2023Q2

REPORT INFORMATION
  Report Type: Spontaneous
  Country: CN (occurrence: CN)
  Receive Date: 20230504
  Receipt Date: 20230504
  Transmission Date: 20230722
  Serious: Yes (Death, Hospitalization, Other)
  Sender: FDA-Public Use
  Company Number: CN-STERISCIENCE B.V.-2023-ST-001236

PATIENT
  Age: 74 Year
  Sex: Female

DRUGS (4)
  1. MEROPENEM [Suspect]
     Active Substance: MEROPENEM
     Indication: Klebsiella pneumoniae invasive syndrome
     Dosage: UNK
     Route: 065
  2. AVIBACTAM SODIUM\CEFTAZIDIME [Suspect]
     Active Substance: AVIBACTAM SODIUM\CEFTAZIDIME
     Indication: Klebsiella pneumoniae invasive syndrome
     Dosage: UNK
     Route: 065
  3. LEVOFLOXACIN [Suspect]
     Active Substance: LEVOFLOXACIN
     Indication: Klebsiella pneumoniae invasive syndrome
     Dosage: UNK
     Route: 065
  4. TIGECYCLINE [Suspect]
     Active Substance: TIGECYCLINE
     Indication: Klebsiella pneumoniae invasive syndrome
     Dosage: UNK
     Route: 065

REACTIONS (1)
  - Drug ineffective [Fatal]
